FAERS Safety Report 20152447 (Version 1)
Quarter: 2021Q4

REPORT INFORMATION
  Report Type: Spontaneous
  Country: US (occurrence: US)
  Receive Date: 20211206
  Receipt Date: 20211206
  Transmission Date: 20220303
  Serious: No
  Sender: FDA-Public Use
  Company Number: US-009507513-2112USA000383

PATIENT
  Age: 56 Year
  Sex: Female

DRUGS (1)
  1. KEYTRUDA [Suspect]
     Active Substance: PEMBROLIZUMAB
     Indication: Peritoneal carcinoma metastatic
     Dosage: ONLY ONE DOSE

REACTIONS (1)
  - Product use in unapproved indication [Unknown]
